FAERS Safety Report 14852146 (Version 1)
Quarter: 2018Q2

REPORT INFORMATION
  Report Type: Report from Study
  Country: US (occurrence: US)
  Receive Date: 20180507
  Receipt Date: 20180507
  Transmission Date: 20180711
  Serious: Yes (Other)
  Sender: FDA-Public Use
  Company Number: US-BAYER-2018-037925

PATIENT
  Age: 62 Year
  Sex: Male

DRUGS (1)
  1. NEXAVAR [Suspect]
     Active Substance: SORAFENIB
     Indication: HEPATOCELLULAR CARCINOMA
     Dosage: 400 MG,DAILY
     Route: 048
     Dates: start: 20180210, end: 20180420

REACTIONS (12)
  - Asthenia [None]
  - Nausea [Not Recovered/Not Resolved]
  - Decreased activity [None]
  - Weight decreased [Not Recovered/Not Resolved]
  - Lip dry [None]
  - Rash [Recovered/Resolved]
  - Feeding disorder [None]
  - Decreased appetite [Not Recovered/Not Resolved]
  - Fatigue [None]
  - Drug ineffective [None]
  - Cheilitis [None]
  - Off label use [None]

NARRATIVE: CASE EVENT DATE: 2018
